FAERS Safety Report 8809589 (Version 1)
Quarter: 2012Q4

REPORT INFORMATION
  Report Type: 
  Country: US (occurrence: US)
  Receive Date: 20120926
  Receipt Date: 20120926
  Transmission Date: 20130627
  Serious: Yes (Death, Other)
  Sender: FDA-Public Use
  Company Number: US-ROCHE-1129195

PATIENT
  Sex: Male

DRUGS (4)
  1. AVASTIN [Suspect]
     Indication: PANCREATIC CARCINOMA
     Route: 065
  2. AVASTIN [Suspect]
     Indication: METASTASES TO LIVER
  3. AVASTIN [Suspect]
     Indication: MALIGNANT NERVOUS SYSTEM NEOPLASM
  4. AVASTIN [Suspect]
     Indication: METASTASES TO MENINGES

REACTIONS (2)
  - Death [Fatal]
  - Central nervous system necrosis [Unknown]
